FAERS Safety Report 5983832-8 (Version None)
Quarter: 2008Q4

REPORT INFORMATION
  Report Type: 
  Country: None (occurrence: None)
  Receive Date: 20081208
  Receipt Date: 20081203
  Transmission Date: 20090506
  Serious: Yes (Hospitalization)
  Sender: FDA-Public Use
  Company Number: A0754359A

PATIENT
  Age: 58 Year
  Sex: Female

DRUGS (6)
  1. ALLI [Suspect]
     Indication: WEIGHT LOSS DIET
     Route: 048
     Dates: start: 20080301, end: 20080101
  2. COUMADIN [Suspect]
     Indication: HEART VALVE REPLACEMENT
     Dosage: 5MG PER DAY
     Route: 065
  3. ATENOLOL [Concomitant]
     Dosage: 25MG TWICE PER DAY
  4. CRESTOR [Concomitant]
     Dosage: 10MG PER DAY
  5. PROAIR HFA [Concomitant]
  6. SPIRIVA [Concomitant]

REACTIONS (7)
  - ABDOMINAL PAIN UPPER [None]
  - COAGULOPATHY [None]
  - DRUG INTERACTION [None]
  - HAEMATEMESIS [None]
  - LARGE INTESTINAL HAEMORRHAGE [None]
  - LOWER GASTROINTESTINAL HAEMORRHAGE [None]
  - PROTHROMBIN TIME PROLONGED [None]
